FAERS Safety Report 8935478 (Version 1)
Quarter: 2012Q4

REPORT INFORMATION
  Report Type: Spontaneous
  Country: US (occurrence: None)
  Receive Date: 20121128
  Receipt Date: 20121128
  Transmission Date: 20130627
  Serious: Yes (Hospitalization)
  Sender: FDA-Public Use
  Company Number: None

PATIENT
  Age: 72 Year
  Sex: Female
  Weight: 68.6 kg

DRUGS (7)
  1. ASA [Suspect]
     Indication: CORONARY ARTERY DISEASE
     Dosage: recent
     Route: 048
  2. PLAVIX [Suspect]
     Indication: CORONARY ARTERY DISEASE
     Dosage: CHRONIC RECENTLY STOPPED
     Route: 048
  3. FENOFIBRATE [Concomitant]
  4. LEVOTHYROXINE [Concomitant]
  5. CENTRUM SILVER [Concomitant]
  6. DILTIAZEM ER [Concomitant]
  7. LACTOBACILLUS [Concomitant]

REACTIONS (2)
  - Contusion [None]
  - Gastritis [None]
